FAERS Safety Report 6159537-X (Version None)
Quarter: 2009Q2

REPORT INFORMATION
  Report Type: 
  Country: None (occurrence: None)
  Receive Date: 20090420
  Receipt Date: 20090410
  Transmission Date: 20091009
  Serious: No
  Sender: FDA-Public Use
  Company Number: KR-JNJFOC-20090402939

PATIENT
  Age: 17 Month
  Sex: Female

DRUGS (1)
  1. DURAGESIC-100 [Suspect]
     Indication: CANCER PAIN
     Route: 062

REACTIONS (3)
  - DRUG PRESCRIBING ERROR [None]
  - OFF LABEL USE [None]
  - SOMNOLENCE [None]
